FAERS Safety Report 9558581 (Version 5)
Quarter: 2014Q1

REPORT INFORMATION
  Report Type: Report from Study
  Country: FR (occurrence: FR)
  Receive Date: 20130926
  Receipt Date: 20140321
  Transmission Date: 20141002
  Serious: Yes (Hospitalization)
  Sender: FDA-Public Use
  Company Number: FR-B.I. PHARMACEUTICALS,INC./RIDGEFIELD-2013-FF-02327FF

PATIENT
  Age: 48 Year
  Sex: Male
  Weight: 52 kg

DRUGS (1)
  1. BIBW 2992 [Suspect]
     Indication: SQUAMOUS CELL CARCINOMA
     Dosage: 40 MG
     Route: 048
     Dates: start: 20130807, end: 20130916

REACTIONS (4)
  - Renal failure acute [Recovered/Resolved]
  - Vomiting [Recovered/Resolved]
  - Diarrhoea [Recovered/Resolved]
  - Mucosal inflammation [Not Recovered/Not Resolved]
